FAERS Safety Report 25728066 (Version 1)
Quarter: 2025Q3

REPORT INFORMATION
  Report Type: Spontaneous
  Country: GB (occurrence: GB)
  Receive Date: 20250826
  Receipt Date: 20250826
  Transmission Date: 20251020
  Serious: Yes (Death, Life-Threatening, Hospitalization, Other)
  Sender: PFIZER
  Company Number: None

PATIENT
  Sex: Male

DRUGS (7)
  1. METHOTREXATE SODIUM [Suspect]
     Active Substance: METHOTREXATE SODIUM
     Indication: Psoriatic arthropathy
  2. OMEPRAZOLE [Concomitant]
     Active Substance: OMEPRAZOLE
  3. FOLIC ACID [Concomitant]
     Active Substance: FOLIC ACID
  4. LISINOPRIL [Concomitant]
     Active Substance: LISINOPRIL
  5. APIXABAN [Concomitant]
     Active Substance: APIXABAN
  6. LERCANIDIPINE [Concomitant]
     Active Substance: LERCANIDIPINE
  7. ATORVASTATIN [Concomitant]
     Active Substance: ATORVASTATIN

REACTIONS (5)
  - Lower respiratory tract infection [Fatal]
  - Respiratory failure [Fatal]
  - Interstitial lung disease [Fatal]
  - Lung disorder [Unknown]
  - Drug monitoring procedure not performed [Not Recovered/Not Resolved]

NARRATIVE: CASE EVENT DATE: 20250702
